FAERS Safety Report 8019995-2 (Version None)
Quarter: 2012Q1

REPORT INFORMATION
  Report Type: 
  Country: None (occurrence: None)
  Receive Date: 20120103
  Receipt Date: 20111227
  Transmission Date: 20120608
  Serious: Yes (Hospitalization, Other)
  Sender: FDA-Public Use
  Company Number: US-BAYER-2011-063248

PATIENT
  Age: 25 Year
  Sex: Female
  Weight: 63.039 kg

DRUGS (10)
  1. YAZ [Suspect]
     Dosage: UNK
     Dates: start: 20090818, end: 20100601
  2. OMEPRAZOLE [Concomitant]
     Dosage: 20 MG, DAILY
     Dates: start: 20100303
  3. HALFLYTELY [BISACODYL,ELECTROLYTES NOS,MACROGOL 3350] [Concomitant]
     Dosage: AS DIRECTED
     Dates: start: 20100308
  4. ZYRTEC [Concomitant]
     Indication: MULTIPLE ALLERGIES
     Dosage: UNK
     Dates: start: 20050101
  5. SUCRALFATE [Concomitant]
     Dosage: 1 G, QID
     Dates: start: 20100304
  6. KAPIDEX [Concomitant]
     Dosage: 60 MG, DAILY
     Dates: start: 20100404
  7. PERCOCET [Concomitant]
  8. AMITIZA [Concomitant]
     Dosage: 8 MCG, BID
  9. PHENERGAN [Concomitant]
  10. CAPIDEX [Concomitant]

REACTIONS (8)
  - INJURY [None]
  - EMOTIONAL DISTRESS [None]
  - GENERAL PHYSICAL HEALTH DETERIORATION [None]
  - GALLBLADDER INJURY [None]
  - SCAR [None]
  - CHOLECYSTITIS CHRONIC [None]
  - ANXIETY [None]
  - GALLBLADDER PAIN [None]
